FAERS Safety Report 7039493-2 (Version None)
Quarter: 2010Q4

REPORT INFORMATION
  Report Type: 
  Country: None (occurrence: None)
  Receive Date: 20101012
  Receipt Date: 20100929
  Transmission Date: 20110411
  Serious: Yes (Other)
  Sender: FDA-Public Use
  Company Number: JP-ELI_LILLY_AND_COMPANY-JP201008003962

PATIENT
  Age: 73 Year
  Sex: Male
  Weight: 47.8 kg

DRUGS (7)
  1. PEMETREXED [Suspect]
     Indication: LUNG ADENOCARCINOMA
     Dosage: 500 MG/M2, OTHER
     Route: 042
     Dates: start: 20100623, end: 20100804
  2. CISPLATIN [Suspect]
     Indication: LUNG ADENOCARCINOMA
     Dosage: 75 MG/M2, OTHER
     Route: 042
     Dates: start: 20100623, end: 20100804
  3. PANVITAN [Concomitant]
     Indication: PROPHYLAXIS
     Dosage: 1 G, DAILY (1/D)
     Route: 048
     Dates: start: 20100608
  4. PARIET [Concomitant]
     Indication: ABDOMINAL DISCOMFORT
     Dosage: 10 MG, DAILY (1/D)
     Route: 048
     Dates: start: 20100721
  5. PRIMPERAN [Concomitant]
     Indication: DECREASED APPETITE
     Dosage: 10 MG, DAILY (1/D)
     Route: 048
     Dates: start: 20100805
  6. EMEND [Concomitant]
     Indication: NAUSEA
     Dosage: UNK, DAILY (1/D)
     Route: 065
     Dates: start: 20100804, end: 20100806
  7. HYDROXOCOBALAMIN ACETATE [Concomitant]
     Dosage: 1 MG, UNKNOWN
     Route: 030
     Dates: start: 20100621, end: 20100817

REACTIONS (3)
  - ATRIAL FIBRILLATION [None]
  - BLOOD SODIUM DECREASED [None]
  - SYNCOPE [None]
